FAERS Safety Report 4966128-2 (Version None)
Quarter: 2006Q2

REPORT INFORMATION
  Report Type: 
  Country: None (occurrence: None)
  Receive Date: 20060403
  Receipt Date: 20060324
  Transmission Date: 20061013
  Serious: Yes (Death, Other)
  Sender: FDA-Public Use
  Company Number: 163-20785-05070415

PATIENT
  Age: 84 Year
  Sex: Male

DRUGS (3)
  1. THALOMID [Suspect]
     Indication: MULTIPLE MYELOMA
     Dosage: 100 MG, DAILY, ORAL
     Route: 048
     Dates: start: 20030529, end: 20031024
  2. MELPHALAN (MELPHALAN) [Suspect]
     Indication: MULTIPLE MYELOMA
  3. VIDAZA [Suspect]
     Indication: MYELODYSPLASTIC SYNDROME
     Dates: start: 20050103

REACTIONS (5)
  - DISEASE PROGRESSION [None]
  - GENERAL PHYSICAL HEALTH DETERIORATION [None]
  - MULTIPLE MYELOMA [None]
  - MYELODYSPLASTIC SYNDROME [None]
  - PNEUMONIA [None]
